FAERS Safety Report 5690251-0 (Version None)
Quarter: 2008Q2

REPORT INFORMATION
  Report Type: 
  Country: None (occurrence: None)
  Receive Date: 20080401
  Receipt Date: 20080326
  Transmission Date: 20081010
  Serious: Yes (Other)
  Sender: FDA-Public Use
  Company Number: AU-ROCHE-555259

PATIENT
  Sex: Female
  Weight: 55 kg

DRUGS (9)
  1. CEFTRIAXONE SODIUM [Suspect]
     Indication: PNEUMONIA
     Route: 042
     Dates: start: 20070901
  2. AZITHROMYCIN [Suspect]
     Indication: PNEUMONIA
     Route: 042
     Dates: start: 20070824
  3. LASIX [Suspect]
     Indication: PNEUMONIA
     Route: 042
     Dates: start: 20070901
  4. ALLOPURINOL [Concomitant]
  5. AVAPRO [Concomitant]
  6. FUROSEMIDE [Concomitant]
  7. ACETAMINOPHEN [Concomitant]
  8. PLAVIX [Concomitant]
  9. SPIRONOLACTONE [Concomitant]

REACTIONS (1)
  - DEAFNESS [None]
